FAERS Safety Report 24631680 (Version 2)
Quarter: 2024Q4

REPORT INFORMATION
  Report Type: Spontaneous
  Country: US (occurrence: US)
  Receive Date: 20241118
  Receipt Date: 20241129
  Transmission Date: 20250114
  Serious: Yes (Death, Hospitalization)
  Sender: TEVA
  Company Number: US-TEVA-VS-3264999

PATIENT
  Age: 50 Year
  Sex: Male

DRUGS (7)
  1. GEMCITABINE [Suspect]
     Active Substance: GEMCITABINE
     Indication: Cholangiocarcinoma
     Route: 065
     Dates: start: 201807
  2. PEMIGATINIB [Suspect]
     Active Substance: PEMIGATINIB
     Indication: Cholangiocarcinoma
     Dosage: REINITIATED AT A LOWER DOSE
     Route: 065
  3. PEMIGATINIB [Suspect]
     Active Substance: PEMIGATINIB
     Indication: Cholangiocarcinoma
     Route: 065
     Dates: start: 202006
  4. NIVOLUMAB [Concomitant]
     Active Substance: NIVOLUMAB
     Indication: Cholangiocarcinoma
     Route: 065
     Dates: start: 201912
  5. IRINOTECAN [Concomitant]
     Active Substance: IRINOTECAN
     Indication: Cholangiocarcinoma
     Route: 065
     Dates: start: 201912
  6. CARBOPLATIN [Suspect]
     Active Substance: CARBOPLATIN
     Indication: Cholangiocarcinoma
     Route: 065
     Dates: start: 201807
  7. FLUOROURACIL [Concomitant]
     Active Substance: FLUOROURACIL
     Indication: Cholangiocarcinoma
     Route: 065
     Dates: start: 201912

REACTIONS (2)
  - Drug ineffective [Fatal]
  - Calciphylaxis [Unknown]
